FAERS Safety Report 8372514-3 (Version None)
Quarter: 2012Q2

REPORT INFORMATION
  Report Type: 
  Country: None (occurrence: None)
  Receive Date: 20120521
  Receipt Date: 20120514
  Transmission Date: 20120825
  Serious: Yes (Death, Hospitalization)
  Sender: FDA-Public Use
  Company Number: PHEH2012US010068

PATIENT
  Sex: Female
  Weight: 98.413 kg

DRUGS (2)
  1. GLEEVEC [Suspect]
     Indication: CHRONIC MYELOID LEUKAEMIA
     Dosage: 100 MG, QID
     Route: 048
     Dates: start: 20101207
  2. CHEMOTHERAPEUTICS [Concomitant]
     Dosage: UNK UKN, UNK
     Dates: start: 20110207

REACTIONS (19)
  - AREFLEXIA [None]
  - HYPOTENSION [None]
  - GRAND MAL CONVULSION [None]
  - DEPRESSED LEVEL OF CONSCIOUSNESS [None]
  - BLAST CRISIS IN MYELOGENOUS LEUKAEMIA [None]
  - MUCOSAL INFLAMMATION [None]
  - ENTEROCOCCAL INFECTION [None]
  - RESPIRATORY DISTRESS [None]
  - FLUID OVERLOAD [None]
  - BRAIN HERNIATION [None]
  - MULTI-ORGAN FAILURE [None]
  - HYPERAMMONAEMIA [None]
  - BRADYCARDIA [None]
  - BRAIN OEDEMA [None]
  - PANCYTOPENIA [None]
  - RENAL FAILURE ACUTE [None]
  - SEPTIC SHOCK [None]
  - GENERAL PHYSICAL HEALTH DETERIORATION [None]
  - ILEUS [None]
